FAERS Safety Report 12093481 (Version 1)
Quarter: 2016Q1

REPORT INFORMATION
  Report Type: Spontaneous
  Country: CZ (occurrence: None)
  Receive Date: 20160217
  Receipt Date: 20160217
  Transmission Date: 20160526
  Serious: Yes (Other)
  Sender: FDA-Public Use
  Company Number: 2016-02580

PATIENT
  Age: 45 Year
  Sex: Female

DRUGS (1)
  1. LEVOSERT (LEVONORGESTREL) INTRAUTERINE DELIVERY SYSTEM [Suspect]
     Active Substance: LEVONORGESTREL
     Indication: CHEMICAL CONTRACEPTION

REACTIONS (2)
  - Device expulsion [None]
  - Device dislocation [None]

NARRATIVE: CASE EVENT DATE: 20160128
